FAERS Safety Report 23363541 (Version 1)
Quarter: 2024Q1

REPORT INFORMATION
  Report Type: Spontaneous
  Country: BR (occurrence: BR)
  Receive Date: 20240103
  Receipt Date: 20240103
  Transmission Date: 20240409
  Serious: Yes (Other)
  Sender: FDA-Public Use
  Company Number: BR-SA-SAC20240103000020

PATIENT
  Age: 15 Year
  Sex: Male
  Weight: 40 kg

DRUGS (9)
  1. SABRIL [Suspect]
     Active Substance: VIGABATRIN
     Indication: Seizure
     Dosage: UNK UNK, BID (2 IN THE MORNING AND 1 IN THE AFTERNOON)
     Route: 048
  2. SABRIL [Suspect]
     Active Substance: VIGABATRIN
     Dosage: DOSE REDUCED
     Route: 048
  3. TOPIRAMATE [Concomitant]
     Active Substance: TOPIRAMATE
     Indication: Product used for unknown indication
     Dosage: 2 DF, BID
     Route: 048
  4. PHENOBARBITAL [Concomitant]
     Active Substance: PHENOBARBITAL
     Indication: Seizure
     Dosage: UNK UNK, TID (MORNING, AFTERNOON AND EVENING)
     Route: 048
     Dates: start: 2021
  5. DOMPERIDONE [Concomitant]
     Active Substance: DOMPERIDONE
     Indication: Abdominal discomfort
     Dosage: UNK UNK, BID (MORNING AND EVENING)
     Route: 048
     Dates: start: 2018
  6. BROMOPRIDE [Concomitant]
     Active Substance: BROMOPRIDE
     Indication: Vomiting
     Dosage: UNK UNK, PRN (WHEN FEELING NAUSEOUS OR VOMITING)
     Route: 048
     Dates: start: 2018
  7. NITRAZEPAM [Concomitant]
     Active Substance: NITRAZEPAM
     Indication: Product used for unknown indication
     Dosage: 2 DF, TID (2 TABLETS MORNING, NOON AND NIGHT)
     Route: 048
  8. ONDANSETRON HYDROCHLORIDE [Concomitant]
     Active Substance: ONDANSETRON HYDROCHLORIDE
     Indication: Vomiting
     Dosage: UNK UNK, PRN (WHEN FEELING NAUSEOUS OR VOMITING)
     Route: 048
     Dates: start: 2018
  9. REVITAN [Concomitant]
     Indication: Product used for unknown indication
     Dosage: UNK
     Route: 048
     Dates: start: 2018

REACTIONS (2)
  - Seizure [Unknown]
  - Intentional product misuse [Unknown]
